FAERS Safety Report 8833726 (Version 1)
Quarter: 2012Q4

REPORT INFORMATION
  Report Type: 
  Country: CN (occurrence: CN)
  Receive Date: 20121010
  Receipt Date: 20121010
  Transmission Date: 20130627
  Serious: Yes (Other)
  Sender: FDA-Public Use
  Company Number: CN-UCBSA-068392

PATIENT
  Age: 10 Month
  Sex: Female
  Weight: 9 kg

DRUGS (4)
  1. LEVETIRACETAM [Suspect]
     Indication: POST-TRAUMATIC EPILEPSY
     Dosage: FINAL DOSAGE OF 27.8 MG/KG/D FOR MAINTENANCE THERAPY
     Dates: start: 201001, end: 20100520
  2. LEVETIRACETAM [Suspect]
     Indication: POST-TRAUMATIC EPILEPSY
     Dosage: 18.5 MG/KG/D FOR ONE WEEK
     Dates: start: 201001, end: 201001
  3. LEVETIRACETAM [Suspect]
     Indication: POST-TRAUMATIC EPILEPSY
     Dosage: 13.8 MG/KG/D FOR ONE WEEK
     Dates: start: 201001, end: 201001
  4. LEVETIRACETAM [Suspect]
     Indication: POST-TRAUMATIC EPILEPSY
     Dosage: 9.25 MG/KG/D FOR 1 WEEK
     Dates: start: 20091229, end: 201001

REACTIONS (1)
  - Blood alkaline phosphatase increased [Recovered/Resolved]
